FAERS Safety Report 13971122 (Version 1)
Quarter: 2017Q3

REPORT INFORMATION
  Report Type: Spontaneous
  Country: US (occurrence: US)
  Receive Date: 20170914
  Receipt Date: 20170914
  Transmission Date: 20171128
  Serious: No
  Sender: FDA-Public Use
  Company Number: US-ASTELLAS-2017US002261

PATIENT
  Age: 81 Year
  Sex: Male

DRUGS (1)
  1. XTANDI [Suspect]
     Active Substance: ENZALUTAMIDE
     Indication: PROSTATE CANCER STAGE IV
     Route: 065

REACTIONS (6)
  - Confusional state [Unknown]
  - Amnesia [Unknown]
  - Decreased appetite [Unknown]
  - Lethargy [Unknown]
  - Musculoskeletal chest pain [Unknown]
  - Somnolence [Unknown]

NARRATIVE: CASE EVENT DATE: 20170113
